FAERS Safety Report 4570261-7 (Version None)
Quarter: 2005Q1

REPORT INFORMATION
  Report Type: 
  Country: None (occurrence: None)
  Receive Date: 20050127
  Receipt Date: 20050127
  Transmission Date: 20050727
  Serious: Yes (Hospitalization)
  Sender: FDA-Public Use
  Company Number: None

PATIENT
  Age: 20 Year
  Sex: Female
  Weight: 57.6068 kg

DRUGS (1)
  1. WELLBUTRIN SR [Suspect]
     Indication: DEPRESSION
     Dosage: 150 DAILY  ORAL
     Route: 048
     Dates: start: 20050105, end: 20050119

REACTIONS (4)
  - GENERALISED OEDEMA [None]
  - HYPOTENSION [None]
  - RASH [None]
  - WHEEZING [None]
